FAERS Safety Report 5496760-1 (Version None)
Quarter: 2007Q4

REPORT INFORMATION
  Report Type: 
  Country: None (occurrence: None)
  Receive Date: 20071025
  Receipt Date: 20070810
  Transmission Date: 20080405
  Serious: No
  Sender: FDA-Public Use
  Company Number: A0669499A

PATIENT
  Age: 60 Year
  Sex: Female

DRUGS (5)
  1. ADVAIR DISKUS 100/50 [Suspect]
     Indication: ASTHMA
     Dosage: 1PUFF TWICE PER DAY
     Route: 055
     Dates: start: 20061101, end: 20070701
  2. NASACORT [Concomitant]
  3. CLARINEX [Concomitant]
  4. PROVENTIL GENTLEHALER [Concomitant]
  5. PROVENTIL NEBULIZER [Concomitant]

REACTIONS (1)
  - THROAT IRRITATION [None]
